FAERS Safety Report 12991862 (Version 2)
Quarter: 2016Q4

REPORT INFORMATION
  Report Type: Spontaneous
  Country: US (occurrence: US)
  Receive Date: 20161201
  Receipt Date: 20161209
  Transmission Date: 20170207
  Serious: Yes (Other)
  Sender: FDA-Public Use
  Company Number: PHHY2016US164013

PATIENT
  Age: 35 Year
  Sex: Female

DRUGS (11)
  1. LOVENOX [Suspect]
     Active Substance: ENOXAPARIN SODIUM
     Indication: ANTIPHOSPHOLIPID ANTIBODIES
     Dosage: 40 MG, BID
     Route: 058
  2. ESTRADIOL. [Suspect]
     Active Substance: ESTRADIOL
     Indication: ASSISTED FERTILISATION
     Dosage: 2 MG, QD
     Route: 048
  3. ESTRADIOL. [Suspect]
     Active Substance: ESTRADIOL
     Indication: ASSISTED FERTILISATION
     Dosage: 0.1 MG, QD (2 PATCHES EVERY 72 HOURS)
     Route: 062
  4. PREDNISONE. [Suspect]
     Active Substance: PREDNISONE
     Indication: IMMUNE ENHANCEMENT THERAPY
  5. ASPIRIN. [Suspect]
     Active Substance: ASPIRIN
     Indication: ANTIPHOSPHOLIPID ANTIBODIES
     Dosage: 81 MG, QD
     Route: 048
  6. LOVENOX [Suspect]
     Active Substance: ENOXAPARIN SODIUM
     Indication: CARDIOVASCULAR DISORDER
  7. IMMUNOGLOBULIN G [Suspect]
     Active Substance: HUMAN IMMUNOGLOBULIN G
     Indication: CELL-MEDIATED CYTOTOXICITY
     Dosage: 400 MG/KG, UNK
     Route: 042
  8. PREDNISONE. [Suspect]
     Active Substance: PREDNISONE
     Indication: CELL-MEDIATED CYTOTOXICITY
     Route: 065
  9. PROGESTERONE. [Suspect]
     Active Substance: PROGESTERONE
     Indication: ASSISTED FERTILISATION
     Dosage: 100 MG, BID
     Route: 067
  10. PROGESTERONE. [Suspect]
     Active Substance: PROGESTERONE
     Indication: ASSISTED FERTILISATION
     Dosage: 50 MG, QD
     Route: 030
  11. ASPIRIN. [Suspect]
     Active Substance: ASPIRIN
     Indication: CARDIOVASCULAR DISORDER

REACTIONS (4)
  - Abortion spontaneous [Unknown]
  - Caesarean section [None]
  - Product use issue [Unknown]
  - Maternal exposure during pregnancy [Unknown]
